FAERS Safety Report 23398574 (Version 4)
Quarter: 2024Q1

REPORT INFORMATION
  Report Type: Spontaneous
  Country: US (occurrence: US)
  Receive Date: 20240112
  Receipt Date: 20240124
  Transmission Date: 20240409
  Serious: Yes (Life-Threatening, Disabling, Congenital Anomaly, Other)
  Sender: FDA-Public Use
  Company Number: US-ABBVIE-5577461

PATIENT
  Sex: Male

DRUGS (1)
  1. DIVALPROEX SODIUM [Suspect]
     Active Substance: DIVALPROEX SODIUM
     Indication: Maternal exposure timing unspecified
     Route: 064

REACTIONS (19)
  - Feminisation acquired [Not Recovered/Not Resolved]
  - Mental disorder [Not Recovered/Not Resolved]
  - Exposure via breast milk [Unknown]
  - Growth retardation [Not Recovered/Not Resolved]
  - Suicidal ideation [Not Recovered/Not Resolved]
  - Learning disorder [Not Recovered/Not Resolved]
  - Cognitive disorder [Not Recovered/Not Resolved]
  - Poor feeding infant [Recovered/Resolved]
  - Diabetes mellitus [Recovered/Resolved]
  - Pain [Unknown]
  - Congenital genital malformation male [Unknown]
  - Emotional disorder [Not Recovered/Not Resolved]
  - Congenital anomaly [Unknown]
  - Neonatal disorder [Recovered/Resolved]
  - Foetal exposure during pregnancy [Unknown]
  - Disability [Not Recovered/Not Resolved]
  - Blood testosterone decreased [Not Recovered/Not Resolved]
  - Speech disorder developmental [Not Recovered/Not Resolved]
  - Suicide attempt [Not Recovered/Not Resolved]

NARRATIVE: CASE EVENT DATE: 20140601
